FAERS Safety Report 14962646 (Version 1)
Quarter: 2018Q2

REPORT INFORMATION
  Report Type: Spontaneous
  Country: FR (occurrence: FR)
  Receive Date: 20180601
  Receipt Date: 20180601
  Transmission Date: 20180711
  Serious: Yes (Death)
  Sender: FDA-Public Use
  Company Number: FR-TEVA-2018-FR-900786

PATIENT
  Age: 56 Year
  Sex: Male
  Weight: 66 kg

DRUGS (16)
  1. ROVALCYTE 450 MG, COMPRIM? PELLICUL? [Concomitant]
     Route: 048
     Dates: start: 201712
  2. MOPRAL 20 MG, COMPRIM? GASTRO-R?SISTANT [Concomitant]
     Active Substance: OMEPRAZOLE
     Route: 048
     Dates: start: 201712
  3. URSOLVAN 200 MG, G?LULE [Concomitant]
     Route: 048
     Dates: start: 201712
  4. FOLINORAL 25 MG, G?LULE [Concomitant]
     Route: 048
     Dates: start: 201712
  5. LANTUS [Concomitant]
     Active Substance: INSULIN GLARGINE
     Route: 058
     Dates: start: 201712
  6. CORTANCYL [Concomitant]
     Active Substance: PREDNISONE
     Route: 048
     Dates: start: 201712
  7. NEORAL [Concomitant]
     Active Substance: CYCLOSPORINE
     Route: 048
     Dates: start: 201712
  8. FLUDARABINE [Suspect]
     Active Substance: FLUDARABINE PHOSPHATE
     Indication: ACUTE LYMPHOCYTIC LEUKAEMIA
     Route: 042
     Dates: start: 20171117, end: 20171120
  9. ENTOCORT 3 MG, MICROGRANULES GASTROR?SISTANTS EN G?LULE [Concomitant]
     Route: 048
     Dates: start: 201712
  10. BESPONSA [Suspect]
     Active Substance: INOTUZUMAB OZOGAMICIN
     Indication: ACUTE LYMPHOCYTIC LEUKAEMIA
     Route: 042
     Dates: start: 20170824, end: 20171019
  11. DIFFU K, G?LULE [Concomitant]
     Active Substance: POTASSIUM CHLORIDE
     Route: 048
     Dates: start: 201712
  12. LERCAN 10 MG, COMPRIM? PELLICUL? S?CABLE [Concomitant]
     Active Substance: LERCANIDIPINE HYDROCHLORIDE
     Route: 048
     Dates: start: 201712
  13. NOXAFIL 100 MG, COMPRIM? GASTRO-R?SISTANT [Concomitant]
     Route: 048
     Dates: start: 201712
  14. NOVORAPID [Concomitant]
     Active Substance: INSULIN ASPART
     Route: 058
     Dates: start: 201712
  15. CLAMOXYL 1 G, POUDRE POUR SUSPENSION BUVABLE EN SACHET [Concomitant]
     Route: 048
     Dates: start: 201712
  16. BACTRIM [Concomitant]
     Active Substance: SULFAMETHOXAZOLE\TRIMETHOPRIM
     Route: 048
     Dates: start: 201712

REACTIONS (2)
  - Venoocclusive liver disease [Fatal]
  - Portal vein thrombosis [Fatal]

NARRATIVE: CASE EVENT DATE: 20180201
